FAERS Safety Report 10010061 (Version 1)
Quarter: 2014Q1

REPORT INFORMATION
  Report Type: Spontaneous
  Country: US (occurrence: US)
  Receive Date: 20140312
  Receipt Date: 20140312
  Transmission Date: 20141002
  Serious: No
  Sender: FDA-Public Use
  Company Number: US-INCYTE CORPORATION-2013IN001016

PATIENT
  Age: 60 Year
  Sex: Male

DRUGS (5)
  1. JAKAFI [Suspect]
     Indication: MYELOFIBROSIS
     Dosage: 5 MG, BID
     Route: 048
     Dates: start: 20120113
  2. JAKAFI [Suspect]
     Dosage: 5 MG, QD
  3. JAKAFI [Suspect]
     Dosage: 5 MG, BID
  4. VICODIN [Concomitant]
  5. MORPHINE [Concomitant]

REACTIONS (5)
  - Discomfort [Unknown]
  - Nausea [Unknown]
  - Vomiting [Unknown]
  - Anaemia [Unknown]
  - Dizziness [Unknown]
